FAERS Safety Report 4617939-4 (Version None)
Quarter: 2005Q1

REPORT INFORMATION
  Report Type: 
  Country: None (occurrence: None)
  Receive Date: 20050322
  Receipt Date: 20050310
  Transmission Date: 20050727
  Serious: Yes (Death, Hospitalization)
  Sender: FDA-Public Use
  Company Number: 2004-00784

PATIENT
  Age: 73 Year
  Sex: Male

DRUGS (5)
  1. VELCADE [Suspect]
     Indication: MULTIPLE MYELOMA
     Dosage: 1.90 MG, 2/WEEK, INTRAVENOUS
     Route: 042
     Dates: start: 20040927, end: 20041028
  2. SERMION (NICERGOLINE) [Concomitant]
  3. PAMIDRONATE DISODIUM [Concomitant]
  4. VASTAREL (TRIMETAZIDINE HYDROCHLORIDE) [Concomitant]
  5. RAMIPRIL [Concomitant]

REACTIONS (8)
  - DISEASE PROGRESSION [None]
  - DIZZINESS [None]
  - HYPERTENSION [None]
  - INFECTION [None]
  - INTESTINAL OBSTRUCTION [None]
  - RESPIRATORY DISORDER [None]
  - SOMNOLENCE [None]
  - VERTIGO [None]
